FAERS Safety Report 4358748-3 (Version None)
Quarter: 2004Q2

REPORT INFORMATION
  Report Type: 
  Country: None (occurrence: None)
  Receive Date: 20040511
  Receipt Date: 20040428
  Transmission Date: 20050107
  Serious: Yes (Hospitalization, Other)
  Sender: FDA-Public Use
  Company Number: 2004028916

PATIENT
  Age: 84 Year
  Sex: Female
  Weight: 52.1637 kg

DRUGS (6)
  1. ZITHROMAX [Suspect]
     Indication: BRONCHITIS
     Dosage: 500 MG (250 MG, 1 IN 1 D), ORAL
     Route: 048
     Dates: start: 20040423, end: 20040424
  2. HYPNOTICS AND SEDATIVES (HYPNOTICS AND SEDATIVES) [Suspect]
     Indication: ILL-DEFINED DISORDER
     Dates: start: 20040401
  3. FUROSEMIDE [Suspect]
     Indication: CARDIAC DISORDER
     Dates: start: 20040401
  4. IRON [Concomitant]
  5. CEFTRIAXONE SODIUM [Concomitant]
  6. ALL OTHER THERAPEUTICS PRODUCTS [Concomitant]

REACTIONS (15)
  - ABNORMAL BEHAVIOUR [None]
  - ANXIETY [None]
  - ATRIAL FIBRILLATION [None]
  - BLOOD BILIRUBIN UNCONJUGATED INCREASED [None]
  - BLOOD SODIUM DECREASED [None]
  - CARDIAC DISORDER [None]
  - CONFUSIONAL STATE [None]
  - INAPPROPRIATE ANTIDIURETIC HORMONE SECRETION [None]
  - MEDICATION ERROR [None]
  - MEMORY IMPAIRMENT [None]
  - NEPHRITIS [None]
  - RENAL DISORDER [None]
  - SOMNOLENCE [None]
  - SPEECH DISORDER [None]
  - VOMITING [None]
